FAERS Safety Report 8615645-2 (Version None)
Quarter: 2012Q3

REPORT INFORMATION
  Report Type: 
  Country: None (occurrence: None)
  Receive Date: 20120823
  Receipt Date: 20120814
  Transmission Date: 20120928
  Serious: Yes (Other)
  Sender: FDA-Public Use
  Company Number: AU-JNJFOC-20120810698

PATIENT
  Sex: Male

DRUGS (8)
  1. STELARA [Suspect]
     Route: 058
     Dates: start: 20111209
  2. STELARA [Suspect]
     Route: 058
     Dates: start: 20110628
  3. STELARA [Suspect]
     Route: 058
     Dates: start: 20110301
  4. STELARA [Suspect]
     Route: 058
     Dates: start: 20120229
  5. STELARA [Suspect]
     Route: 058
     Dates: start: 20110329
  6. STELARA [Suspect]
     Indication: PSORIASIS
     Route: 058
     Dates: start: 20110920
  7. STELARA [Suspect]
     Route: 058
     Dates: start: 20120517
  8. STELARA [Suspect]
     Route: 058
     Dates: start: 20120814

REACTIONS (3)
  - ANTIBODY TEST POSITIVE [None]
  - ARTHRALGIA [None]
  - PSORIASIS [None]
